FAERS Safety Report 8615834-7 (Version None)
Quarter: 2012Q3

REPORT INFORMATION
  Report Type: 
  Country: None (occurrence: None)
  Receive Date: 20120823
  Receipt Date: 20120816
  Transmission Date: 20120928
  Serious: Yes (Hospitalization)
  Sender: FDA-Public Use
  Company Number: PHHO2012DE012003

PATIENT
  Sex: Male
  Weight: 85 kg

DRUGS (16)
  1. PREDNISONE TAB [Suspect]
     Indication: CHEMOTHERAPY
  2. DIURETICS [Suspect]
  3. TORSEMIDE [Concomitant]
     Indication: OEDEMA
     Dosage: 10 MG, UNK
     Dates: start: 20120708
  4. ALLOPURINOL [Concomitant]
     Indication: HYPERURICAEMIA
     Dosage: 300
     Dates: start: 20120702, end: 20120813
  5. ALLOPURINOL [Concomitant]
     Dosage: 100
     Dates: start: 20120814
  6. PANTOPRAZOLE [Concomitant]
     Indication: PROPHYLAXIS AGAINST GASTROINTESTINAL ULCER
     Dosage: 40
     Dates: start: 20120728, end: 20120813
  7. PANTOPRAZOLE [Concomitant]
     Dosage: 80
     Dates: start: 20120814
  8. CYCLOPHOSPHAMIDE [Suspect]
     Indication: CHEMOTHERAPY
  9. POTASSIUM CHLORIDE [Concomitant]
     Indication: HYPOCALCAEMIA
     Dosage: 16 MMOL/L, UNK
     Dates: start: 20120728, end: 20120813
  10. RAMIPRIL [Suspect]
  11. METOPROLOL TARTRATE [Concomitant]
     Indication: HYPERTENSION
     Dates: start: 20120728
  12. POTASSIUM CHLORIDE [Concomitant]
     Dosage: 48 MOL, UNK
     Dates: start: 20120814
  13. RAMIPRIL [Concomitant]
     Indication: HYPERTENSION
     Dosage: 5
     Dates: start: 20120702, end: 20120814
  14. MABTHERA [Suspect]
     Indication: NON-HODGKIN'S LYMPHOMA
     Dosage: UNK
     Route: 042
     Dates: start: 20120728, end: 20120728
  15. VINCRISTINE [Suspect]
     Indication: CHEMOTHERAPY
  16. HYDROCHLOROTHIAZIDE [Concomitant]
     Indication: OEDEMA
     Dosage: 2
     Dates: start: 20120728, end: 20120814

REACTIONS (1)
  - ASCITES [None]
